FAERS Safety Report 25550798 (Version 1)
Quarter: 2025Q3

REPORT INFORMATION
  Report Type: Spontaneous
  Country: US (occurrence: US)
  Receive Date: 20250714
  Receipt Date: 20250714
  Transmission Date: 20251021
  Serious: No
  Sender: INTRA-CELLULAR THERAPIES
  Company Number: US-INTRA-CELLULAR THERAPIES, INC.-2025ICT00592

PATIENT
  Age: 4 Decade
  Sex: Female

DRUGS (2)
  1. CAPLYTA [Suspect]
     Active Substance: LUMATEPERONE
     Indication: Bipolar I disorder
  2. PHENAZEPAM [Concomitant]
     Active Substance: PHENAZEPAM

REACTIONS (3)
  - Flushing [Recovered/Resolved]
  - Irritability [Unknown]
  - Dizziness [Recovered/Resolved]
